FAERS Safety Report 11438303 (Version 1)
Quarter: 2015Q3

REPORT INFORMATION
  Report Type: Spontaneous
  Country: US (occurrence: US)
  Receive Date: 20150901
  Receipt Date: 20150901
  Transmission Date: 20151125
  Serious: Yes (Other)
  Sender: FDA-Public Use
  Company Number: US-ROCHE-1164504

PATIENT
  Age: 47 Year
  Sex: Male

DRUGS (3)
  1. TELAPREVIR [Suspect]
     Active Substance: TELAPREVIR
     Indication: HEPATITIS C
     Route: 065
     Dates: start: 20121107, end: 20121231
  2. COPEGUS [Suspect]
     Active Substance: RIBAVIRIN
     Indication: HEPATITIS C
     Dosage: DIVIDED DOSE 200/400
     Route: 048
     Dates: start: 20121107
  3. PEGASYS [Suspect]
     Active Substance: PEGINTERFERON ALFA-2A
     Indication: HEPATITIS C
     Route: 058
     Dates: start: 20121107

REACTIONS (9)
  - Dyspnoea [Unknown]
  - Insomnia [Unknown]
  - Stevens-Johnson syndrome [Unknown]
  - Oral mucosal blistering [Unknown]
  - Lower respiratory tract infection [Unknown]
  - Rash [Unknown]
  - Irritability [Unknown]
  - Pyrexia [Unknown]
  - Chest discomfort [Unknown]

NARRATIVE: CASE EVENT DATE: 20121224
